FAERS Safety Report 24434204 (Version 1)
Quarter: 2024Q4

REPORT INFORMATION
  Report Type: Spontaneous
  Country: ES (occurrence: ES)
  Receive Date: 20241014
  Receipt Date: 20241014
  Transmission Date: 20250115
  Serious: Yes (Other)
  Sender: FRESENIUS KABI
  Company Number: None

PATIENT
  Sex: Female

DRUGS (1)
  1. OXYTOCIN [Suspect]
     Active Substance: OXYTOCIN
     Indication: Product used for unknown indication
     Route: 030
     Dates: start: 202408, end: 202408

REACTIONS (3)
  - Uterine hypertonus [Recovering/Resolving]
  - Uterine pain [Recovering/Resolving]
  - Wrong product administered [Recovering/Resolving]

NARRATIVE: CASE EVENT DATE: 20240801
